FAERS Safety Report 25818611 (Version 1)
Quarter: 2025Q3

REPORT INFORMATION
  Report Type: Spontaneous
  Country: US (occurrence: US)
  Receive Date: 20250918
  Receipt Date: 20250918
  Transmission Date: 20251020
  Serious: No
  Sender: Haleon PLC
  Company Number: US-HALEON-2263192

PATIENT
  Age: 62 Year
  Sex: Female

DRUGS (2)
  1. TUMS ULTRA [Suspect]
     Active Substance: CALCIUM CARBONATE
     Indication: Abdominal distension
  2. TUMS [Suspect]
     Active Substance: CALCIUM CARBONATE
     Indication: Abdominal distension

REACTIONS (1)
  - Dizziness [Unknown]
